FAERS Safety Report 5901737-5 (Version None)
Quarter: 2008Q3

REPORT INFORMATION
  Report Type: 
  Country: None (occurrence: None)
  Receive Date: 20080926
  Receipt Date: 20080926
  Transmission Date: 20090109
  Serious: Yes (Hospitalization)
  Sender: FDA-Public Use
  Company Number: None

PATIENT
  Age: 38 Year
  Sex: Female
  Weight: 71.6683 kg

DRUGS (1)
  1. CLOFARABINE  20MG/20ML  GENZYME [Suspect]
     Indication: ACUTE LYMPHOCYTIC LEUKAEMIA
     Dosage: 78MG DAILY IV DRIP
     Route: 041
     Dates: start: 20080918, end: 20080922

REACTIONS (1)
  - PANCREATITIS [None]
